FAERS Safety Report 16127553 (Version 1)
Quarter: 2019Q1

REPORT INFORMATION
  Report Type: Spontaneous
  Country: US (occurrence: US)
  Receive Date: 20190328
  Receipt Date: 20190328
  Transmission Date: 20190418
  Serious: No
  Sender: FDA-Public Use
  Company Number: US-PFIZER INC-2019130474

PATIENT

DRUGS (5)
  1. AMITRIPTYLINE [Suspect]
     Active Substance: AMITRIPTYLINE
     Dosage: UNK
  2. LAMICTAL [Suspect]
     Active Substance: LAMOTRIGINE
     Dosage: UNK
  3. TOPAMAX [Suspect]
     Active Substance: TOPIRAMATE
     Dosage: UNK
  4. TYLENOL [Suspect]
     Active Substance: ACETAMINOPHEN
     Dosage: UNK
  5. GABAPENTIN. [Suspect]
     Active Substance: GABAPENTIN
     Dosage: UNK

REACTIONS (1)
  - Drug hypersensitivity [Unknown]
